FAERS Safety Report 7356554-9 (Version None)
Quarter: 2011Q1

REPORT INFORMATION
  Report Type: 
  Country: None (occurrence: None)
  Receive Date: 20110316
  Receipt Date: 20110302
  Transmission Date: 20110831
  Serious: Yes (Hospitalization)
  Sender: FDA-Public Use
  Company Number: PHHY2011ES16973

PATIENT
  Age: 78 Year
  Sex: Female

DRUGS (9)
  1. ANASTROZOLE [Concomitant]
     Dosage: 01 MG, DAILY
     Route: 048
     Dates: start: 20081001
  2. SINTROM [Concomitant]
     Dosage: UNK
     Route: 048
     Dates: start: 20100701
  3. OMNIPAQUE 140 [Concomitant]
     Dosage: UNK
     Route: 042
  4. ENALAPRIL MALEATE [Concomitant]
     Dosage: 20 MG, DAILY
     Route: 048
     Dates: start: 20100701
  5. FUROSEMIDE [Concomitant]
     Dosage: 10 MG, DAILY
     Route: 048
     Dates: start: 20100701
  6. CO-DIOVAN [Suspect]
     Indication: HYPERTENSION
     Dosage: 80/12.5 MG, UNK
     Route: 048
     Dates: start: 20100701
  7. LEVOTHYROXINE [Concomitant]
     Dosage: 25 MCG, DAILY
     Route: 048
     Dates: start: 19960101
  8. ATENOLOL [Concomitant]
     Dosage: 25 MG, DAILY
     Route: 048
  9. OMEPRAZOLE [Concomitant]
     Dosage: 20 MG, DAILY
     Route: 048
     Dates: start: 20100701

REACTIONS (4)
  - RENAL COLIC [None]
  - RENAL DISORDER [None]
  - BACK PAIN [None]
  - RENAL FAILURE ACUTE [None]
